FAERS Safety Report 19418674 (Version 8)
Quarter: 2021Q3

REPORT INFORMATION
  Report Type: Report from Study
  Country: US (occurrence: US)
  Receive Date: 20210615
  Receipt Date: 20210928
  Transmission Date: 20211014
  Serious: Yes (Other)
  Sender: FDA-Public Use
  Company Number: US-TAKEDA-2020TUS015836

PATIENT
  Sex: Female

DRUGS (3)
  1. VEDOLIZUMAB [Suspect]
     Active Substance: VEDOLIZUMAB
     Indication: COLITIS ULCERATIVE
     Dosage: 300 MILLIGRAM, Q4WEEKS
     Route: 042
  2. VEDOLIZUMAB [Suspect]
     Active Substance: VEDOLIZUMAB
     Indication: RECTAL HAEMORRHAGE
     Dosage: 300 MILLIGRAM, Q2WEEKS
     Route: 042
  3. BENADRYL [Suspect]
     Active Substance: DIPHENHYDRAMINE HYDROCHLORIDE
     Indication: PRODUCT USED FOR UNKNOWN INDICATION
     Dosage: UNK
     Route: 065

REACTIONS (20)
  - Limb injury [Unknown]
  - Frustration tolerance decreased [Unknown]
  - Chest pain [Unknown]
  - Fatigue [Unknown]
  - Nervous system disorder [Unknown]
  - Malaise [Unknown]
  - Colitis [Unknown]
  - Product storage error [Unknown]
  - Headache [Unknown]
  - Off label use [Unknown]
  - Foot fracture [Unknown]
  - Atrial fibrillation [Unknown]
  - Tension [Unknown]
  - Fall [Unknown]
  - Illness [Unknown]
  - Cataract [Unknown]
  - Somnolence [Unknown]
  - Feeling abnormal [Unknown]
  - Product dose omission issue [Unknown]
  - Palpitations [Unknown]
